FAERS Safety Report 10189674 (Version 1)
Quarter: 2014Q2

REPORT INFORMATION
  Report Type: Spontaneous
  Country: US (occurrence: US)
  Receive Date: 20140522
  Receipt Date: 20140522
  Transmission Date: 20141212
  Serious: Yes (Other)
  Sender: FDA-Public Use
  Company Number: US-SA-2014SA027491

PATIENT
  Age: 54 Year
  Sex: Male

DRUGS (4)
  1. LANTUS SOLOSTAR [Suspect]
     Indication: TYPE 1 DIABETES MELLITUS
     Dosage: 22 UNITS IN AM AND 10 UNITS IN PM
     Route: 058
  2. APIDRA SOLOSTAR [Suspect]
     Indication: PRODUCT USED FOR UNKNOWN INDICATION
     Route: 058
  3. SOLOSTAR [Concomitant]
     Indication: TYPE 1 DIABETES MELLITUS
     Dates: start: 20090101
  4. SOLOSTAR [Concomitant]

REACTIONS (2)
  - Blood glucose decreased [Recovered/Resolved]
  - Drug administration error [Unknown]
